FAERS Safety Report 11226249 (Version 2)
Quarter: 2015Q3

REPORT INFORMATION
  Report Type: Spontaneous
  Country: JP (occurrence: JP)
  Receive Date: 20150629
  Receipt Date: 20150714
  Transmission Date: 20151125
  Serious: Yes (Hospitalization)
  Sender: FDA-Public Use
  Company Number: JP-MYLANLABS-2015M1021467

PATIENT

DRUGS (4)
  1. VALPROATE [Interacting]
     Active Substance: VALPROATE SODIUM
     Indication: SUICIDAL IDEATION
     Dosage: 200 MG
     Route: 048
  2. LAMOTRIGINE. [Suspect]
     Active Substance: LAMOTRIGINE
     Indication: SUICIDAL IDEATION
     Dosage: 50 MG/DAY
     Route: 048
     Dates: start: 201209
  3. PREDNISOLONE. [Suspect]
     Active Substance: PREDNISOLONE
     Indication: DRUG REACTION WITH EOSINOPHILIA AND SYSTEMIC SYMPTOMS
     Dosage: 30 MG/DAY
     Route: 048
  4. SOLU-MEDROL [Suspect]
     Active Substance: METHYLPREDNISOLONE SODIUM SUCCINATE
     Indication: DRUG REACTION WITH EOSINOPHILIA AND SYSTEMIC SYMPTOMS
     Dosage: 60 MG/DAY
     Route: 041

REACTIONS (6)
  - Drug interaction [Recovered/Resolved]
  - Bacteraemia [Recovered/Resolved]
  - Sepsis [Recovered/Resolved]
  - Drug reaction with eosinophilia and systemic symptoms [Recovered/Resolved]
  - Toxic epidermal necrolysis [Recovered/Resolved]
  - Histiocytosis haematophagic [Recovered/Resolved]
